FAERS Safety Report 15546166 (Version 1)
Quarter: 2018Q4

REPORT INFORMATION
  Report Type: Spontaneous
  Country: US (occurrence: US)
  Receive Date: 20181023
  Receipt Date: 20181023
  Transmission Date: 20190205
  Serious: Yes (Death)
  Sender: FDA-Public Use
  Company Number: None

PATIENT
  Age: 62 Year
  Sex: Female
  Weight: 101.7 kg

DRUGS (1)
  1. HCTZ [Suspect]
     Active Substance: HYDROCHLOROTHIAZIDE
     Indication: HYPERTENSION
     Dates: start: 20120821, end: 20181014

REACTIONS (3)
  - Recalled product administered [None]
  - Product label on wrong product [None]
  - Death [None]

NARRATIVE: CASE EVENT DATE: 20181014
